FAERS Safety Report 5313761-4 (Version None)
Quarter: 2007Q2

REPORT INFORMATION
  Report Type: 
  Country: None (occurrence: None)
  Receive Date: 20070426
  Receipt Date: 20070410
  Transmission Date: 20071010
  Serious: Yes (Other)
  Sender: FDA-Public Use
  Company Number: JPKYO-S-20070012FU

PATIENT
  Age: 68 Year
  Sex: Female

DRUGS (8)
  1. NAVELBINE [Suspect]
     Indication: METASTASES TO LYMPH NODES
     Dosage: 34 MG UNK; IV
     Route: 042
     Dates: start: 20060424, end: 20061225
  2. MERCAZOLE [Concomitant]
  3. LOXONIN [Concomitant]
  4. SELBEX [Concomitant]
  5. OMEPRAZOLE [Concomitant]
  6. NOVAMIN [Concomitant]
  7. OPSO [Concomitant]
  8. MAGNESIUM OXIDE [Concomitant]

REACTIONS (4)
  - DISCOMFORT [None]
  - OPTIC NEURITIS [None]
  - VISION BLURRED [None]
  - VISUAL ACUITY REDUCED [None]
